FAERS Safety Report 7537444 (Version 14)
Quarter: 2015Q2

REPORT INFORMATION
  Report Type: Report from Study
  Country: JP (occurrence: JP)
  Receive Date: 20100811
  Receipt Date: 20150611
  Transmission Date: 20150821
  Serious: Yes (Life-Threatening, Hospitalization, Other)
  Sender: FDA-Public Use
  Company Number: PHHY2010JP50217

PATIENT
  Age: 77 Year
  Sex: Female
  Weight: 36 kg

DRUGS (46)
  1. RED BLOOD CELLS, CONCENTRATED [Concomitant]
     Active Substance: HUMAN RED BLOOD CELL
     Dosage: 4 U, EVERY TWO WEEKS
     Route: 065
     Dates: start: 20100614, end: 20100922
  2. TIMOPTOL-XE [Concomitant]
     Active Substance: TIMOLOL
     Indication: PRODUCT USED FOR UNKNOWN INDICATION
     Dosage: UNK
     Route: 047
     Dates: end: 20130918
  3. PREDNISOLONE. [Suspect]
     Active Substance: PREDNISOLONE
     Dosage: 5 MG
     Route: 048
     Dates: start: 20120905, end: 20130416
  4. REVLIMID [Suspect]
     Active Substance: LENALIDOMIDE
     Dosage: 5 MG, QD
     Route: 048
     Dates: start: 20110519, end: 20110601
  5. RED BLOOD CELLS, CONCENTRATED [Concomitant]
     Active Substance: HUMAN RED BLOOD CELL
     Indication: PRODUCT USED FOR UNKNOWN INDICATION
     Dosage: 4 U, EVERY THREE WEEKS
     Route: 065
     Dates: start: 20100427, end: 20100528
  6. BONALON [Concomitant]
     Active Substance: ALENDRONATE SODIUM
     Indication: PRODUCT USED FOR UNKNOWN INDICATION
     Dosage: 5 MG, UNK
     Route: 048
     Dates: start: 20100412
  7. PREDNISOLONE. [Suspect]
     Active Substance: PREDNISOLONE
     Indication: PRODUCT USED FOR UNKNOWN INDICATION
     Dosage: 8 MG, QD
     Route: 048
     Dates: start: 200704, end: 20090929
  8. PREDNISOLONE. [Suspect]
     Active Substance: PREDNISOLONE
     Dosage: 8 MG, QD
     Route: 048
     Dates: start: 20110928, end: 20120124
  9. PREDNISOLONE. [Suspect]
     Active Substance: PREDNISOLONE
     Dosage: 7 MG, UNK
     Route: 048
     Dates: start: 20120125, end: 20130313
  10. REVLIMID [Suspect]
     Active Substance: LENALIDOMIDE
     Indication: MYELODYSPLASTIC SYNDROME
     Dosage: 5 MG, QD
     Route: 048
     Dates: start: 20110412, end: 20110502
  11. NOVOLIN 30R [Concomitant]
     Active Substance: INSULIN HUMAN
     Indication: PRODUCT USED FOR UNKNOWN INDICATION
     Dosage: 10 IU, UNK
     Route: 065
     Dates: start: 20090826, end: 20091027
  12. AMARYL [Concomitant]
     Active Substance: GLIMEPIRIDE
     Dosage: 1 MG, UNK
     Dates: start: 20120125, end: 20120214
  13. GLUFAST [Concomitant]
     Active Substance: MITIGLINIDE
     Dosage: 20 MG, UNK
     Route: 048
     Dates: end: 20110222
  14. AZOPT [Concomitant]
     Active Substance: BRINZOLAMIDE
     Indication: PRODUCT USED FOR UNKNOWN INDICATION
     Dosage: UNK
     Route: 047
     Dates: end: 20130918
  15. PLATELETS [Concomitant]
     Active Substance: HUMAN PLATELET, ALLOGENIC
     Dosage: 15 U, TID
     Route: 065
     Dates: start: 20100420, end: 20110511
  16. ICL670A [Suspect]
     Active Substance: DEFERASIROX
     Dosage: 500 MG
     Route: 048
     Dates: start: 20130418
  17. PREDNISOLONE. [Suspect]
     Active Substance: PREDNISOLONE
     Dosage: 7 MG, UNK
     Route: 048
     Dates: start: 20090930, end: 20100202
  18. PREDNISOLONE. [Suspect]
     Active Substance: PREDNISOLONE
     Dosage: 4 MG
     Route: 048
     Dates: end: 20110927
  19. PREDNISOLONE. [Suspect]
     Active Substance: PREDNISOLONE
     Dosage: 4 MG
     Route: 048
     Dates: start: 20130417, end: 20130918
  20. NOVOLIN 30R [Concomitant]
     Active Substance: INSULIN HUMAN
     Dosage: 14 IU, UNK
     Route: 065
     Dates: start: 20091125, end: 20100421
  21. AMARYL [Concomitant]
     Active Substance: GLIMEPIRIDE
     Dosage: 0.5 UNK, UNK
     Dates: start: 20110420, end: 20120124
  22. GLUFAST [Concomitant]
     Active Substance: MITIGLINIDE
     Indication: PRODUCT USED FOR UNKNOWN INDICATION
     Dosage: 40 MG, UNK
     Route: 048
     Dates: start: 20100826
  23. PREDNISOLONE. [Suspect]
     Active Substance: PREDNISOLONE
     Dosage: 6 MG
     Route: 048
     Dates: start: 20120314, end: 20120904
  24. GASTER [Concomitant]
     Active Substance: FAMOTIDINE
     Dosage: 20 MG, UNK
     Route: 048
     Dates: end: 20130918
  25. NOVOLIN 30R [Concomitant]
     Active Substance: INSULIN HUMAN
     Dosage: 10 IU, UNK
     Route: 065
     Dates: start: 20100422, end: 20100603
  26. AMARYL [Concomitant]
     Active Substance: GLIMEPIRIDE
     Indication: PRODUCT USED FOR UNKNOWN INDICATION
     Dosage: 0.5 MG, UNK
     Route: 048
     Dates: start: 20100604, end: 20100820
  27. MUCODYNE [Concomitant]
     Active Substance: CARBOCYSTEINE
     Indication: PROPHYLAXIS
     Dosage: 1500 MG, UNK
     Route: 048
     Dates: start: 20100819
  28. KLARICID [Concomitant]
     Active Substance: CLARITHROMYCIN
     Indication: PROPHYLAXIS
     Dosage: 200 MG, UNK
     Route: 048
     Dates: start: 20100823
  29. VOGLIBOSE [Concomitant]
     Active Substance: VOGLIBOSE
     Indication: PRODUCT USED FOR UNKNOWN INDICATION
     Dosage: 0.6 MG, UNK
     Route: 048
     Dates: start: 20110406
  30. VOGLIBOSE [Concomitant]
     Active Substance: VOGLIBOSE
     Dosage: 0.6 MG, UNK
     Route: 048
     Dates: start: 20120906, end: 20130918
  31. ICL670A [Suspect]
     Active Substance: DEFERASIROX
     Indication: MYELODYSPLASTIC SYNDROME
     Dosage: 750 MG, QD
     Route: 048
     Dates: start: 20090916, end: 20110403
  32. ICL670A [Suspect]
     Active Substance: DEFERASIROX
     Dosage: 625 MG, QOD
     Route: 048
     Dates: start: 20110519, end: 20130417
  33. DESFERAL [Concomitant]
     Active Substance: DEFEROXAMINE MESYLATE
     Dosage: 1000 MG, UNK
     Route: 030
     Dates: start: 20110407, end: 20110415
  34. GASTER [Concomitant]
     Active Substance: FAMOTIDINE
     Indication: GASTRITIS PROPHYLAXIS
     Dosage: 40 MG, UNK
     Route: 048
  35. AMARYL [Concomitant]
     Active Substance: GLIMEPIRIDE
     Dosage: 1 MG, UNK
     Route: 048
     Dates: start: 20120906, end: 20130918
  36. PLATELETS [Concomitant]
     Active Substance: HUMAN PLATELET, ALLOGENIC
     Indication: PRODUCT USED FOR UNKNOWN INDICATION
     Dosage: 15 U, TID
     Route: 065
     Dates: start: 20110519, end: 20110605
  37. ICL670A [Suspect]
     Active Substance: DEFERASIROX
     Dosage: 625 MG, QD
     Route: 048
     Dates: start: 20110507, end: 20110518
  38. PREDNISOLONE. [Suspect]
     Active Substance: PREDNISOLONE
     Dosage: 6 MG, QD
     Route: 048
     Dates: start: 20100203, end: 20100421
  39. PREDNISOLONE. [Suspect]
     Active Substance: PREDNISOLONE
     Dosage: 5 MG, QD
     Route: 048
     Dates: start: 20100422
  40. AMARYL [Concomitant]
     Active Substance: GLIMEPIRIDE
     Dosage: 1.5 UNK, UNK
     Dates: start: 20120215, end: 20120410
  41. XALATAN [Concomitant]
     Active Substance: LATANOPROST
     Indication: PRODUCT USED FOR UNKNOWN INDICATION
     Dosage: UNK
     Route: 047
     Dates: end: 20130918
  42. DESFERAL [Concomitant]
     Active Substance: DEFEROXAMINE MESYLATE
     Indication: IRON OVERLOAD
     Dosage: 1000 MG, UNK
     Route: 030
     Dates: start: 20071227, end: 20090902
  43. DESFERAL [Concomitant]
     Active Substance: DEFEROXAMINE MESYLATE
     Dosage: 1000 MG, UNK
     Route: 030
     Dates: start: 20110428, end: 20110502
  44. NOVOLIN 30R [Concomitant]
     Active Substance: INSULIN HUMAN
     Dosage: 12 IU, UNK
     Route: 065
     Dates: start: 20091028, end: 20091124
  45. AMARYL [Concomitant]
     Active Substance: GLIMEPIRIDE
     Dosage: 2 MG, UNK
     Dates: start: 20120411, end: 20120905
  46. EQUA [Concomitant]
     Active Substance: VILDAGLIPTIN
     Indication: PRODUCT USED FOR UNKNOWN INDICATION
     Dosage: 100 MG, UNK
     Route: 048
     Dates: start: 20120906, end: 20130918

REACTIONS (16)
  - Renal impairment [Recovered/Resolved]
  - Renal impairment [Recovered/Resolved]
  - General physical health deterioration [Unknown]
  - Pyrexia [Unknown]
  - Herpes zoster [Recovered/Resolved]
  - Sepsis [Recovered/Resolved]
  - Blood alkaline phosphatase increased [Not Recovered/Not Resolved]
  - Thrombocytopenia [Recovered/Resolved]
  - Blood creatinine increased [Not Recovered/Not Resolved]
  - Urinary tract infection [Recovered/Resolved]
  - Pneumonia [Recovered/Resolved]
  - Blood creatinine increased [Recovered/Resolved]
  - Pneumonia [Recovered/Resolved]
  - Pubis fracture [Recovered/Resolved]
  - Neutropenia [Recovered/Resolved]
  - Cough [Unknown]

NARRATIVE: CASE EVENT DATE: 20100427
